FAERS Safety Report 15774519 (Version 1)
Quarter: 2018Q4

REPORT INFORMATION
  Report Type: Spontaneous
  Country: US (occurrence: US)
  Receive Date: 20181229
  Receipt Date: 20181229
  Transmission Date: 20190205
  Serious: Yes (Other)
  Sender: FDA-Public Use
  Company Number: US-GLAXOSMITHKLINE-US2018GSK231691

PATIENT

DRUGS (3)
  1. WELLBUTRIN [Suspect]
     Active Substance: BUPROPION HYDROCHLORIDE
     Indication: PRODUCT USED FOR UNKNOWN INDICATION
     Dosage: 450 DF, UNK
  2. APLENZIN [Suspect]
     Active Substance: BUPROPION HYDROBROMIDE
     Indication: PRODUCT USED FOR UNKNOWN INDICATION
  3. WELLBUTRIN XL [Concomitant]
     Active Substance: BUPROPION HYDROCHLORIDE

REACTIONS (2)
  - Prescribed overdose [Recovered/Resolved]
  - Suicidal ideation [Unknown]
